FAERS Safety Report 16626899 (Version 1)
Quarter: 2019Q3

REPORT INFORMATION
  Report Type: Spontaneous
  Country: US (occurrence: US)
  Receive Date: 20190724
  Receipt Date: 20190724
  Transmission Date: 20191004
  Serious: No
  Sender: FDA-Public Use
  Company Number: US-SA-2019SA198299

PATIENT
  Age: 49 Year
  Sex: Female

DRUGS (1)
  1. KEVZARA [Suspect]
     Active Substance: SARILUMAB
     Dosage: UNK
     Dates: start: 201906

REACTIONS (3)
  - Pain [Unknown]
  - Nasopharyngitis [Unknown]
  - Fatigue [Unknown]

NARRATIVE: CASE EVENT DATE: 201906
